FAERS Safety Report 7804871-8 (Version None)
Quarter: 2011Q4

REPORT INFORMATION
  Report Type: 
  Country: None (occurrence: None)
  Receive Date: 20111010
  Receipt Date: 20110930
  Transmission Date: 20120403
  Serious: Yes (Hospitalization, Other)
  Sender: FDA-Public Use
  Company Number: US-MERCK-1109USA01920

PATIENT
  Age: 57 Year
  Sex: Female

DRUGS (2)
  1. FOSAMAX [Suspect]
     Indication: OSTEOPENIA
     Route: 048
     Dates: start: 19950101, end: 20100101
  2. FOSAMAX [Suspect]
     Indication: OSTEOPOROSIS
     Route: 048
     Dates: start: 19950101, end: 20100101

REACTIONS (11)
  - TIBIA FRACTURE [None]
  - LOW TURNOVER OSTEOPATHY [None]
  - PERIPROSTHETIC FRACTURE [None]
  - FRACTURE NONUNION [None]
  - PNEUMONIA [None]
  - FEMUR FRACTURE [None]
  - FIBULA FRACTURE [None]
  - DEVICE RELATED INFECTION [None]
  - PATHOLOGICAL FRACTURE [None]
  - FALL [None]
  - PAIN IN EXTREMITY [None]
